FAERS Safety Report 19964026 (Version 1)
Quarter: 2021Q4

REPORT INFORMATION
  Report Type: Spontaneous
  Country: US (occurrence: US)
  Receive Date: 20211014
  Receipt Date: 20211014
  Transmission Date: 20220303
  Serious: No
  Sender: FDA-Public Use
  Company Number: None

PATIENT
  Age: 88 Year
  Sex: Female

DRUGS (2)
  1. VITRAKVI [Suspect]
     Active Substance: LAROTRECTINIB
     Indication: Hepatic cancer
     Route: 048
     Dates: start: 20210901, end: 202109
  2. ONDANSETRON [Suspect]
     Active Substance: ONDANSETRON
     Indication: Hepatic cancer
     Route: 048
     Dates: start: 20210901, end: 202109

REACTIONS (1)
  - Neoplasm malignant [None]

NARRATIVE: CASE EVENT DATE: 20210922
